FAERS Safety Report 4907051-9 (Version None)
Quarter: 2006Q1

REPORT INFORMATION
  Report Type: 
  Country: None (occurrence: None)
  Receive Date: 20060207
  Receipt Date: 20060117
  Transmission Date: 20060701
  Serious: Yes (Other)
  Sender: FDA-Public Use
  Company Number: COM06-08

PATIENT
  Age: 80 Year
  Sex: Male

DRUGS (1)
  1. METOPROLOL TARTRATE [Suspect]
     Indication: HYPERTENSION
     Dosage: 1 NOT INCLUDED

REACTIONS (2)
  - DIZZINESS [None]
  - HEART RATE DECREASED [None]
